FAERS Safety Report 5294955-3 (Version None)
Quarter: 2007Q2

REPORT INFORMATION
  Report Type: 
  Country: None (occurrence: None)
  Receive Date: 20070412
  Receipt Date: 20070402
  Transmission Date: 20071010
  Serious: Yes (Other)
  Sender: FDA-Public Use
  Company Number: IE-GLAXOSMITHKLINE-B0465879A

PATIENT
  Sex: Female

DRUGS (2)
  1. NIQUITIN CQ LOZENGE [Suspect]
     Indication: DRUG USE FOR UNKNOWN INDICATION
     Dosage: 2MG PER DAY
     Route: 002
  2. CHANTIX [Concomitant]

REACTIONS (4)
  - DEPENDENCE [None]
  - INTENTIONAL DRUG MISUSE [None]
  - ORAL PAIN [None]
  - OVERDOSE [None]
